FAERS Safety Report 20001367 (Version 1)
Quarter: 2021Q4

REPORT INFORMATION
  Report Type: Spontaneous
  Country: US (occurrence: US)
  Receive Date: 20211027
  Receipt Date: 20211027
  Transmission Date: 20220304
  Serious: Yes (Hospitalization)
  Sender: FDA-Public Use
  Company Number: None

PATIENT
  Age: 43 Year
  Sex: Female
  Weight: 84.7 kg

DRUGS (2)
  1. ERBITUX [Suspect]
     Active Substance: CETUXIMAB
     Dates: end: 20210914
  2. TAXOTERE [Suspect]
     Active Substance: DOCETAXEL
     Dates: end: 20210914

REACTIONS (7)
  - Chills [None]
  - Dyspnoea [None]
  - Chest discomfort [None]
  - Nausea [None]
  - Cough [None]
  - Sepsis [None]
  - Heart rate increased [None]

NARRATIVE: CASE EVENT DATE: 20211012
